FAERS Safety Report 4805748-2 (Version None)
Quarter: 2005Q4

REPORT INFORMATION
  Report Type: 
  Country: None (occurrence: None)
  Receive Date: 20051021
  Receipt Date: 20051011
  Transmission Date: 20060501
  Serious: Yes (Hospitalization)
  Sender: FDA-Public Use
  Company Number: JP-ROCHE-420698

PATIENT
  Age: 71 Year
  Sex: Male

DRUGS (1)
  1. PANALDINE [Suspect]
     Indication: CEREBRAL INFARCTION
     Route: 048

REACTIONS (7)
  - GLOMERULONEPHRITIS PROLIFERATIVE [None]
  - HAEMATURIA [None]
  - LUPUS-LIKE SYNDROME [None]
  - LYMPHADENOPATHY [None]
  - PERICARDIAL EFFUSION [None]
  - PLEURISY [None]
  - PROTEINURIA [None]
